FAERS Safety Report 9844602 (Version 1)
Quarter: 2014Q1

REPORT INFORMATION
  Report Type: Spontaneous
  Country: US (occurrence: None)
  Receive Date: 20140123
  Receipt Date: 20140123
  Transmission Date: 20141002
  Serious: Yes (Disabling, Other)
  Sender: FDA-Public Use
  Company Number: None

PATIENT
  Age: 62 Year
  Sex: Female
  Weight: 66.23 kg

DRUGS (2)
  1. ANASTROZOLE [Suspect]
     Indication: BREAST CANCER STAGE I
     Route: 048
     Dates: start: 20121014, end: 20130131
  2. ANASTROZOLE [Suspect]
     Indication: MUCINOUS BREAST CARCINOMA
     Route: 048
     Dates: start: 20121014, end: 20130131

REACTIONS (20)
  - Bone pain [None]
  - Back pain [None]
  - Arthralgia [None]
  - Trigger finger [None]
  - Dizziness [None]
  - Vertigo [None]
  - Epistaxis [None]
  - Gingival bleeding [None]
  - Weight increased [None]
  - Speech disorder [None]
  - Fatigue [None]
  - Sleep disorder [None]
  - Staphylococcal infection [None]
  - Alopecia [None]
  - Hypertension [None]
  - Blood cholesterol increased [None]
  - Heart rate increased [None]
  - Spinal disorder [None]
  - Intervertebral disc protrusion [None]
  - Intervertebral disc annular tear [None]
